FAERS Safety Report 7945120-X (Version None)
Quarter: 2011Q4

REPORT INFORMATION
  Report Type: 
  Country: None (occurrence: None)
  Receive Date: 20111129
  Receipt Date: 20111129
  Transmission Date: 20120403
  Serious: Yes (Disabling, Other)
  Sender: FDA-Public Use
  Company Number: None

PATIENT
  Age: 59 Year
  Sex: Female
  Weight: 68.038 kg

DRUGS (1)
  1. TRIAMCINOLONE ACETONIDE [Suspect]
     Indication: RASH
     Dosage: ON SMALL AREA OF HANDS
     Route: 061
     Dates: start: 20100101, end: 20111001

REACTIONS (7)
  - REBOUND EFFECT [None]
  - SKIN DISORDER [None]
  - WITHDRAWAL SYNDROME [None]
  - PRODUCT SUBSTITUTION ISSUE [None]
  - RASH PRURITIC [None]
  - DRUG DEPENDENCE [None]
  - RASH ERYTHEMATOUS [None]
